FAERS Safety Report 10181605 (Version 2)
Quarter: 2014Q3

REPORT INFORMATION
  Report Type: Spontaneous
  Country: IT (occurrence: IT)
  Receive Date: 20140519
  Receipt Date: 20140730
  Transmission Date: 20150326
  Serious: Yes (Hospitalization)
  Sender: FDA-Public Use
  Company Number: IT-WATSON-2014-09968

PATIENT
  Age: 40 Year
  Sex: Male

DRUGS (6)
  1. EN [Suspect]
     Active Substance: DELORAZEPAM
     Indication: INTENTIONAL SELF-INJURY
     Dosage: 80 DROPS/TOTAL
     Route: 048
     Dates: start: 20140426, end: 20140426
  2. GABAPENTIN. [Concomitant]
     Active Substance: GABAPENTIN
     Indication: PRODUCT USED FOR UNKNOWN INDICATION
     Dosage: UNK
     Route: 065
  3. INDOXEN [Suspect]
     Active Substance: INDOMETHACIN
     Indication: INTENTIONAL SELF-INJURY
     Dosage: 5 DF, TOTAL
     Route: 048
     Dates: start: 20140426, end: 20140426
  4. ZOLPIDEM [Suspect]
     Active Substance: ZOLPIDEM\ZOLPIDEM TARTRATE
     Indication: INTENTIONAL SELF-INJURY
     Dosage: 40 DF, TOTAL
     Route: 048
     Dates: start: 20140426, end: 20140426
  5. DAPAROX /00830802/ [Suspect]
     Active Substance: PAROXETINE HYDROCHLORIDE
     Indication: INTENTIONAL SELF-INJURY
     Dosage: 2 DF, TOTAL
     Route: 048
     Dates: start: 20140426, end: 20140426
  6. ALCOHOL. [Concomitant]
     Active Substance: ALCOHOL
     Indication: PRODUCT USED FOR UNKNOWN INDICATION
     Dosage: UNK
     Route: 065

REACTIONS (2)
  - Drug abuse [Recovered/Resolved]
  - Bradykinesia [Recovered/Resolved]

NARRATIVE: CASE EVENT DATE: 20140427
